FAERS Safety Report 9912028 (Version 1)
Quarter: 2014Q1

REPORT INFORMATION
  Report Type: Spontaneous
  Country: AR (occurrence: AR)
  Receive Date: 20140219
  Receipt Date: 20140219
  Transmission Date: 20141002
  Serious: No
  Sender: FDA-Public Use
  Company Number: AR-SA-2014SA002449

PATIENT
  Age: 52 Year
  Sex: Female

DRUGS (1)
  1. KYNAMRO [Suspect]
     Indication: HYPERCHOLESTEROLAEMIA
     Route: 058
     Dates: start: 20131107

REACTIONS (1)
  - Injection site rash [Recovered/Resolved]
